FAERS Safety Report 20554329 (Version 1)
Quarter: 2022Q1

REPORT INFORMATION
  Report Type: Report from Study
  Country: CA (occurrence: CA)
  Receive Date: 20220304
  Receipt Date: 20220304
  Transmission Date: 20220423
  Serious: Yes (Hospitalization)
  Sender: FDA-Public Use
  Company Number: CA-CELGENE-CAN-20220208452

PATIENT
  Age: 63 Year
  Sex: Male

DRUGS (1)
  1. ONUREG [Suspect]
     Active Substance: AZACITIDINE
     Indication: Leukaemia
     Route: 048

REACTIONS (1)
  - Leukaemia recurrent [Unknown]

NARRATIVE: CASE EVENT DATE: 20210210
